FAERS Safety Report 7237891-5 (Version None)
Quarter: 2011Q1

REPORT INFORMATION
  Report Type: 
  Country: None (occurrence: None)
  Receive Date: 20110119
  Receipt Date: 20110119
  Transmission Date: 20110831
  Serious: No
  Sender: FDA-Public Use
  Company Number: None

PATIENT
  Age: 54 Year
  Sex: Female

DRUGS (6)
  1. ZYRTEC [Concomitant]
  2. ADVAIR [Concomitant]
  3. COMBIVENT [Concomitant]
  4. AUGMENTIN '125' [Suspect]
     Dates: start: 20071227, end: 20080213
  5. PREMARIN [Concomitant]
  6. NEXIUM [Concomitant]

REACTIONS (3)
  - GALLBLADDER DISORDER [None]
  - LIVER INJURY [None]
  - HEPATITIS ACUTE [None]
